FAERS Safety Report 9280653 (Version 1)
Quarter: 2013Q2

REPORT INFORMATION
  Report Type: Spontaneous
  Country: US (occurrence: US)
  Receive Date: 20130509
  Receipt Date: 20130509
  Transmission Date: 20140414
  Serious: No
  Sender: FDA-Public Use
  Company Number: US-PFIZER INC-2013140350

PATIENT
  Age: 66 Year
  Sex: Male

DRUGS (2)
  1. VIAGRA [Suspect]
     Dosage: 50 MG, 1 HOUR BEFORE SEXUAL ACTIVITY.
     Route: 048
  2. VIAGRA [Suspect]
     Dosage: STRENGH OF 100, AS NEEDED
     Route: 048

REACTIONS (1)
  - Back pain [Unknown]
